FAERS Safety Report 6875467-X (Version None)
Quarter: 2010Q3

REPORT INFORMATION
  Report Type: 
  Country: None (occurrence: None)
  Receive Date: 20100727
  Receipt Date: 20100714
  Transmission Date: 20110219
  Serious: Yes (Hospitalization)
  Sender: FDA-Public Use
  Company Number: US-JNJFOC-20100705012

PATIENT
  Age: 5 Year
  Sex: Female
  Weight: 17.5 kg

DRUGS (7)
  1. PARACETAMOL [Suspect]
     Indication: PYREXIA
     Route: 048
  2. PARACETAMOL [Suspect]
     Route: 048
  3. ASPIRIN [Suspect]
     Indication: PYREXIA
     Dosage: 324 MG EVERY 4-8 HOURS
  4. ASPIRIN [Suspect]
  5. ASPIRIN [Suspect]
     Indication: INFLUENZA LIKE ILLNESS
  6. ASPIRIN [Suspect]
     Dosage: 324 MG EVERY 4-8 HOURS
  7. ALL OTHER THERAPEUTIC PRODUCTS [Concomitant]

REACTIONS (3)
  - DRUG TOXICITY [None]
  - LIVER INJURY [None]
  - MULTIPLE DRUG OVERDOSE [None]
